FAERS Safety Report 8179189-7 (Version None)
Quarter: 2012Q1

REPORT INFORMATION
  Report Type: 
  Country: None (occurrence: None)
  Receive Date: 20120227
  Receipt Date: 20120213
  Transmission Date: 20120608
  Serious: Yes (Other)
  Sender: FDA-Public Use
  Company Number: 2012P1005213

PATIENT
  Age: 74 Year
  Sex: Female

DRUGS (4)
  1. FLUVASTATIN [Concomitant]
  2. OMEPRAZOLE [Concomitant]
  3. TRAMADOL HCL [Concomitant]
  4. SODIUM CHLORIDE 0.9% [Suspect]
     Indication: HYPONATRAEMIA

REACTIONS (1)
  - RHABDOMYOLYSIS [None]
